FAERS Safety Report 12784281 (Version 1)
Quarter: 2016Q3

REPORT INFORMATION
  Report Type: Report from Study
  Country: RO (occurrence: RO)
  Receive Date: 20160927
  Receipt Date: 20160927
  Transmission Date: 20161109
  Serious: Yes (Hospitalization)
  Sender: FDA-Public Use
  Company Number: RO-ABBVIE-16K-135-1734453-00

PATIENT
  Age: 55 Year
  Sex: Male

DRUGS (1)
  1. DUODOPA [Suspect]
     Active Substance: CARBIDOPA\LEVODOPA
     Indication: PARKINSON^S DISEASE
     Dosage: MD=6ML?CR=3,6ML?ED=1,5ML
     Route: 050
     Dates: start: 20130404

REACTIONS (6)
  - Medical device site calcification [Unknown]
  - Pyrexia [Recovered/Resolved]
  - Stoma site ulcer [Unknown]
  - Stoma site hypergranulation [Recovered/Resolved]
  - Hyperhidrosis [Unknown]
  - Hypoglycaemia [Recovered/Resolved]

NARRATIVE: CASE EVENT DATE: 20160919
